FAERS Safety Report 6143931-7 (Version None)
Quarter: 2009Q2

REPORT INFORMATION
  Report Type: 
  Country: None (occurrence: None)
  Receive Date: 20090406
  Receipt Date: 20090325
  Transmission Date: 20091009
  Serious: Yes (Death)
  Sender: FDA-Public Use
  Company Number: US-PFIZER INC-2009189182

PATIENT
  Sex: Female

DRUGS (2)
  1. LOPID [Suspect]
  2. ZOLOFT [Suspect]

REACTIONS (1)
  - DEATH [None]
